FAERS Safety Report 9821914 (Version 1)
Quarter: 2014Q1

REPORT INFORMATION
  Report Type: Report from Study
  Country: GR (occurrence: GR)
  Receive Date: 20140116
  Receipt Date: 20140116
  Transmission Date: 20141002
  Serious: Yes (Other)
  Sender: FDA-Public Use
  Company Number: GR-BAXTER-2014BAX002347

PATIENT
  Sex: 0

DRUGS (2)
  1. KIOVIG 100 MG/ML SOLUTION FOR INFUSION [Suspect]
     Indication: DERMATITIS ATOPIC
     Dosage: 2 GM/KG/MONTH
     Route: 042
  2. KIOVIG 100 MG/ML SOLUTION FOR INFUSION [Suspect]
     Indication: OFF LABEL USE

REACTIONS (1)
  - Drug effect decreased [Unknown]
